FAERS Safety Report 5203005-6 (Version None)
Quarter: 2006Q4

REPORT INFORMATION
  Report Type: 
  Country: None (occurrence: None)
  Receive Date: 20061016
  Receipt Date: 20060303
  Transmission Date: 20070319
  Serious: Yes (Other)
  Sender: FDA-Public Use
  Company Number: 2005171846

PATIENT
  Age: 26 Year
  Sex: Female
  Weight: 106.5953 kg

DRUGS (5)
  1. NEURONTIN [Suspect]
     Indication: PAIN IN EXTREMITY
     Dosage: 900 MG (300 MG , 3 IN 1 D), ORAL
     Route: 048
     Dates: start: 20040901, end: 20050901
  2. NORCO [Concomitant]
  3. MUSCLE RELAXANTS (MUSCLE RELAXANTS) [Concomitant]
  4. METFORMIN HCL [Concomitant]
  5. ANAFLEX (POLYNOXYLIN) [Concomitant]

REACTIONS (2)
  - ARTHRALGIA [None]
  - HEADACHE [None]
